FAERS Safety Report 5632595-4 (Version None)
Quarter: 2008Q1

REPORT INFORMATION
  Report Type: 
  Country: None (occurrence: None)
  Receive Date: 20080220
  Receipt Date: 20080211
  Transmission Date: 20080703
  Serious: Yes (Other)
  Sender: FDA-Public Use
  Company Number: US-PFIZER INC-2008001173

PATIENT
  Age: 86 Year
  Sex: Male
  Weight: 68 kg

DRUGS (1)
  1. DETROL LA [Suspect]
     Route: 048

REACTIONS (3)
  - BLOOD CREATININE INCREASED [None]
  - DIALYSIS [None]
  - RENAL IMPAIRMENT [None]
